FAERS Safety Report 5189072-7 (Version None)
Quarter: 2006Q4

REPORT INFORMATION
  Report Type: 
  Country: None (occurrence: None)
  Receive Date: 20061218
  Receipt Date: 20061201
  Transmission Date: 20070319
  Serious: Yes (Death)
  Sender: FDA-Public Use
  Company Number: US-2006-030312

PATIENT
  Sex: Male

DRUGS (7)
  1. BETASERON [Suspect]
     Indication: SECONDARY PROGRESSIVE MULTIPLE SCLEROSIS
     Dosage: SUBCUTANEOUS
     Route: 058
     Dates: start: 20020801
  2. BETASERON [Suspect]
     Indication: SECONDARY PROGRESSIVE MULTIPLE SCLEROSIS
     Dosage: SUBCUTANEOUS
     Route: 058
     Dates: start: 20040119
  3. ATACAND [Concomitant]
  4. TOPROL-XL [Concomitant]
  5. FLOMAX [Concomitant]
  6. PROSCAR [Concomitant]
  7. BACLOFEN [Concomitant]

REACTIONS (1)
  - DEATH [None]
